FAERS Safety Report 12872216 (Version 2)
Quarter: 2016Q4

REPORT INFORMATION
  Report Type: Spontaneous
  Country: CN (occurrence: CN)
  Receive Date: 20161021
  Receipt Date: 20161024
  Transmission Date: 20170207
  Serious: Yes (Other)
  Sender: FDA-Public Use
  Company Number: CN-009507513-1610CHN011532

PATIENT
  Sex: Male

DRUGS (2)
  1. FOSFOMYCIN [Concomitant]
     Active Substance: FOSFOMYCIN
     Indication: ANTI-INFECTIVE THERAPY
     Dosage: UNK
  2. IMIPENEM AND CILASTATIN [Suspect]
     Active Substance: CILASTATIN SODIUM\IMIPENEM
     Indication: ANTI-INFECTIVE THERAPY
     Dosage: 20 MG/KG, Q8H, IV DRIP
     Route: 041

REACTIONS (2)
  - Drug ineffective [Recovered/Resolved]
  - Pneumococcal infection [Recovered/Resolved]
